FAERS Safety Report 4393609-5 (Version None)
Quarter: 2004Q3

REPORT INFORMATION
  Report Type: 
  Country: None (occurrence: None)
  Receive Date: 20040706
  Receipt Date: 20040706
  Transmission Date: 20050211
  Serious: Yes (Hospitalization)
  Sender: FDA-Public Use
  Company Number: None

PATIENT
  Age: 59 Year

DRUGS (3)
  1. NAPROXEN [Suspect]
     Dosage: 325 MG PO BID
     Route: 048
  2. PLAVIX [Suspect]
     Dosage: 75 MG QD
  3. ASPIRIN [Suspect]
     Dosage: 325 MG PO QD
     Route: 048

REACTIONS (3)
  - GASTROINTESTINAL HAEMORRHAGE [None]
  - HAEMATURIA [None]
  - HYPOKALAEMIA [None]
